FAERS Safety Report 5065191-0 (Version None)
Quarter: 2006Q3

REPORT INFORMATION
  Report Type: 
  Country: None (occurrence: None)
  Receive Date: 20060705
  Receipt Date: 20050610
  Transmission Date: 20061208
  Serious: Yes (Other)
  Sender: FDA-Public Use
  Company Number: US-2005-005771

PATIENT
  Age: 17 Year
  Sex: Female
  Weight: 47.6 kg

DRUGS (1)
  1. YASMIN [Suspect]
     Indication: MENORRHAGIA
     Dosage: 1 TAB(S), 1X/DAY, ORAL
     Route: 048
     Dates: start: 20050223, end: 20050401

REACTIONS (1)
  - THROMBOSIS [None]
